FAERS Safety Report 4362404-5 (Version None)
Quarter: 2004Q2

REPORT INFORMATION
  Report Type: 
  Country: None (occurrence: None)
  Receive Date: 20040521
  Receipt Date: 20040507
  Transmission Date: 20050107
  Serious: Yes (Hospitalization)
  Sender: FDA-Public Use
  Company Number: PHHO2004DE06651

PATIENT
  Age: 48 Year
  Sex: Male

DRUGS (2)
  1. PKC412 [Suspect]
     Indication: GASTROINTESTINAL STROMAL TUMOUR
     Dosage: 50 MG, BID
     Route: 048
     Dates: start: 20031125
  2. GLEEVEC [Suspect]
     Indication: GASTROINTESTINAL STROMAL TUMOUR
     Dosage: 500 MG, BID
     Route: 048
     Dates: start: 20031125

REACTIONS (2)
  - HYPOGLYCAEMIA [None]
  - SYNCOPE [None]
